FAERS Safety Report 16044535 (Version 2)
Quarter: 2019Q1

REPORT INFORMATION
  Report Type: Spontaneous
  Country: US (occurrence: US)
  Receive Date: 20190306
  Receipt Date: 20190315
  Transmission Date: 20190418
  Serious: No
  Sender: FDA-Public Use
  Company Number: US-CELGENEUS-USA-20190300203

PATIENT
  Age: 58 Year
  Sex: Female

DRUGS (3)
  1. HUMIRA [Concomitant]
     Active Substance: ADALIMUMAB
     Indication: CROHN^S DISEASE
     Route: 065
  2. OTEZLA [Suspect]
     Active Substance: APREMILAST
     Indication: PSORIASIS
     Dosage: 60 MILLIGRAM
     Route: 048
     Dates: start: 2019
  3. OTEZLA [Suspect]
     Active Substance: APREMILAST
     Indication: PSORIASIS
     Dosage: 60 MILLIGRAM
     Route: 048
     Dates: start: 20160112, end: 201901

REACTIONS (2)
  - Product dose omission [Unknown]
  - Psoriasis [Recovered/Resolved]

NARRATIVE: CASE EVENT DATE: 201901
